FAERS Safety Report 19354895 (Version 1)
Quarter: 2021Q2

REPORT INFORMATION
  Report Type: Spontaneous
  Country: US (occurrence: US)
  Receive Date: 20210531
  Receipt Date: 20210531
  Transmission Date: 20210717
  Serious: Yes (Other)
  Sender: FDA-Public Use
  Company Number: US-PFIZER INC-2020394913

PATIENT
  Age: 74 Year
  Sex: Male

DRUGS (2)
  1. LYRICA [Suspect]
     Active Substance: PREGABALIN
     Indication: PAIN
     Dosage: 650 MG, DAILY (50MG, 3 TIMES, TWICE THREE TIMES)
  2. LYRICA [Suspect]
     Active Substance: PREGABALIN
     Dosage: 100 MG, 3X/DAY (TAKE 2 CAPSULES (100 MG TOTAL) BY MOUTH THREE TIMES DAILY)
     Route: 048

REACTIONS (2)
  - Prescribed overdose [Unknown]
  - Neoplasm malignant [Unknown]
